FAERS Safety Report 8238345-X (Version None)
Quarter: 2012Q1

REPORT INFORMATION
  Report Type: 
  Country: None (occurrence: None)
  Receive Date: 20120327
  Receipt Date: 20120319
  Transmission Date: 20120608
  Serious: Yes (Other)
  Sender: FDA-Public Use
  Company Number: US-ROCHE-1052341

PATIENT
  Sex: Female

DRUGS (1)
  1. LUCENTIS [Suspect]
     Indication: RETINAL TEAR
     Dosage: 2 AMPOULES
     Route: 050
     Dates: start: 20110101, end: 20120227

REACTIONS (2)
  - BLOOD GLUCOSE INCREASED [None]
  - VISUAL IMPAIRMENT [None]
